FAERS Safety Report 5812513-6 (Version None)
Quarter: 2008Q3

REPORT INFORMATION
  Report Type: 
  Country: None (occurrence: None)
  Receive Date: 20080715
  Receipt Date: 20080715
  Transmission Date: 20090109
  Serious: Yes (Life-Threatening, Hospitalization)
  Sender: FDA-Public Use
  Company Number: None

PATIENT
  Age: 74 Year
  Sex: Male
  Weight: 74.8435 kg

DRUGS (1)
  1. DIGITEK .25MG [Suspect]
     Indication: CARDIAC DISORDER
     Dosage: ONE TABLET DAILY
     Dates: start: 20060601, end: 20071007

REACTIONS (7)
  - AORTIC VALVE DISEASE [None]
  - ATRIAL FIBRILLATION [None]
  - CARDIAC ARREST [None]
  - CONDITION AGGRAVATED [None]
  - PHOTOPHOBIA [None]
  - THERAPEUTIC AGENT TOXICITY [None]
  - VISUAL IMPAIRMENT [None]
